FAERS Safety Report 14843402 (Version 2)
Quarter: 2018Q4

REPORT INFORMATION
  Report Type: Spontaneous
  Country: NL (occurrence: NL)
  Receive Date: 20180503
  Receipt Date: 20181227
  Transmission Date: 20190204
  Serious: Yes (Other)
  Sender: FDA-Public Use
  Company Number: NL-MYLANLABS-2018M1028273

PATIENT
  Age: 58 Year
  Sex: Female
  Weight: 172 kg

DRUGS (2)
  1. AMITRIPTYLINE [Suspect]
     Active Substance: AMITRIPTYLINE
     Indication: DIZZINESS
  2. AMITRIPTYLINE [Suspect]
     Active Substance: AMITRIPTYLINE
     Indication: PANCREATICODUODENECTOMY
     Dosage: 10 MG, QD, 1X PER DAG 1 TABLET
     Route: 048
     Dates: start: 20170828, end: 20170911

REACTIONS (6)
  - Glaucoma [Recovered/Resolved with Sequelae]
  - Crystal urine [Not Recovered/Not Resolved]
  - Optic nerve injury [Not Recovered/Not Resolved]
  - Renal pain [Not Recovered/Not Resolved]
  - Haematuria [Recovered/Resolved]
  - Nephrolithiasis [Not Recovered/Not Resolved]

NARRATIVE: CASE EVENT DATE: 20170901
